FAERS Safety Report 16405192 (Version 3)
Quarter: 2019Q3

REPORT INFORMATION
  Report Type: Report from Study
  Country: US (occurrence: US)
  Receive Date: 20190607
  Receipt Date: 20190923
  Transmission Date: 20191004
  Serious: Yes (Other)
  Sender: FDA-Public Use
  Company Number: US-THERATECHNOLOGIES, INC.-TH-2019-00081

PATIENT

DRUGS (1)
  1. EGRIFTA [Suspect]
     Active Substance: TESAMORELIN
     Dosage: UNK
     Dates: end: 201905

REACTIONS (4)
  - Drug ineffective [Unknown]
  - Asthma [Unknown]
  - Intestinal mass [Unknown]
  - Neoplasm malignant [Unknown]
